FAERS Safety Report 4294745-4 (Version None)
Quarter: 2004Q1

REPORT INFORMATION
  Report Type: 
  Country: None (occurrence: None)
  Receive Date: 20040211
  Receipt Date: 20040127
  Transmission Date: 20041129
  Serious: Yes (Hospitalization)
  Sender: FDA-Public Use
  Company Number: JP_040102443

PATIENT
  Age: 74 Year
  Sex: Male
  Weight: 67 kg

DRUGS (11)
  1. HUMALOG [Suspect]
     Indication: DIABETES MELLITUS
     Dosage: 11 U/DAY
     Dates: start: 20031210, end: 20031226
  2. ACTOS [Concomitant]
  3. NICHISTATE  (TICLOPIDINE HYDROCHLORIDE) [Concomitant]
  4. ASPIRIN [Concomitant]
  5. ISOSORBIDE MONONITRATE [Concomitant]
  6. CILOSTAZOL [Concomitant]
  7. LIPITOR [Concomitant]
  8. OMEPRAZOLE [Concomitant]
  9. IRSOGLADINE MALEATE [Concomitant]
  10. MEXIRATE (MEXILETINE HYDROCHLORIDE) [Concomitant]
  11. LANIRAPID (METILDIGOXIN) [Concomitant]

REACTIONS (5)
  - AGRANULOCYTOSIS [None]
  - EOSINOPHIL PERCENTAGE INCREASED [None]
  - LYMPHOCYTE PERCENTAGE INCREASED [None]
  - MONOCYTE PERCENTAGE INCREASED [None]
  - WHITE BLOOD CELL COUNT DECREASED [None]
